FAERS Safety Report 16171526 (Version 1)
Quarter: 2019Q2

REPORT INFORMATION
  Report Type: Report from Study
  Country: US (occurrence: US)
  Receive Date: 20190408
  Receipt Date: 20190408
  Transmission Date: 20190711
  Serious: Yes (Hospitalization, Other)
  Sender: FDA-Public Use
  Company Number: US-SA-2019SA092974

PATIENT
  Age: 72 Year
  Sex: Female

DRUGS (1)
  1. INSULIN GLARGINE [Suspect]
     Active Substance: INSULIN GLARGINE
     Indication: TYPE 2 DIABETES MELLITUS
     Dosage: 28 U, QD
     Route: 058

REACTIONS (6)
  - Myocardial infarction [Unknown]
  - Appendicitis perforated [Unknown]
  - Atrioventricular block [Unknown]
  - Foot amputation [Unknown]
  - Limb operation [Unknown]
  - Angina pectoris [Unknown]

NARRATIVE: CASE EVENT DATE: 20171225
